FAERS Safety Report 4407740-9 (Version None)
Quarter: 2004Q3

REPORT INFORMATION
  Report Type: 
  Country: None (occurrence: None)
  Receive Date: 20040721
  Receipt Date: 20040709
  Transmission Date: 20050211
  Serious: Yes (Life-Threatening, Hospitalization)
  Sender: FDA-Public Use
  Company Number: 04P-151-0266721-00

PATIENT
  Age: 55 Year
  Sex: Male
  Weight: 80 kg

DRUGS (3)
  1. TARKA [Suspect]
     Indication: HYPERTENSION
     Dosage: 1 IN 1 D, PER ORAL, MONTHS
     Route: 048
     Dates: end: 20040621
  2. ATORVASTATIN CALCIUM [Concomitant]
  3. LORAZEPAM [Concomitant]

REACTIONS (17)
  - ATRIOVENTRICULAR BLOCK COMPLETE [None]
  - BLOOD ETHANOL INCREASED [None]
  - BRADYCARDIA [None]
  - ENCEPHALOPATHY [None]
  - FALL [None]
  - GLASGOW COMA SCALE ABNORMAL [None]
  - HEPATIC FAILURE [None]
  - HYPOTENSION [None]
  - INTESTINAL ISCHAEMIA [None]
  - LACTIC ACIDOSIS [None]
  - OXYGEN SATURATION DECREASED [None]
  - PULSE ABSENT [None]
  - RENAL FAILURE [None]
  - SEPTIC SHOCK [None]
  - THROMBOCYTOPENIA [None]
  - VENTRICULAR ARRHYTHMIA [None]
  - WOUND [None]
